FAERS Safety Report 15289441 (Version 3)
Quarter: 2018Q3

REPORT INFORMATION
  Report Type: Spontaneous
  Country: JP (occurrence: JP)
  Receive Date: 20180817
  Receipt Date: 20180824
  Transmission Date: 20181010
  Serious: Yes (Hospitalization)
  Sender: FDA-Public Use
  Company Number: JP-ROCHE-1569726

PATIENT
  Sex: Female

DRUGS (8)
  1. ACTEMRA [Suspect]
     Active Substance: TOCILIZUMAB
     Indication: TAKAYASU^S ARTERITIS
     Route: 041
     Dates: start: 201101, end: 201104
  2. CICLOSPORIN [Concomitant]
     Active Substance: CYCLOSPORINE
     Indication: TAKAYASU^S ARTERITIS
     Route: 065
  3. PREDNISOLONE. [Concomitant]
     Active Substance: PREDNISOLONE
     Route: 048
  4. METHOTREXATE. [Concomitant]
     Active Substance: METHOTREXATE
     Indication: TAKAYASU^S ARTERITIS
     Dosage: AMOUNT ONCE ADMINISTERED :6 (UNIT UNCERTAINTY)
     Route: 065
  5. PREDNISOLONE. [Concomitant]
     Active Substance: PREDNISOLONE
     Indication: TAKAYASU^S ARTERITIS
     Route: 065
     Dates: start: 200905
  6. CICLOSPORIN [Concomitant]
     Active Substance: CYCLOSPORINE
     Route: 048
  7. METHOTREXATE. [Concomitant]
     Active Substance: METHOTREXATE
     Route: 048
  8. CICLOSPORIN [Concomitant]
     Active Substance: CYCLOSPORINE
     Route: 048

REACTIONS (7)
  - Aortic wall hypertrophy [Recovered/Resolved]
  - Pleurisy [Recovered/Resolved]
  - Product use in unapproved indication [Unknown]
  - Off label use [Unknown]
  - Inflammatory marker increased [Unknown]
  - Takayasu^s arteritis [Unknown]
  - Back pain [Unknown]
